FAERS Safety Report 10770380 (Version 1)
Quarter: 2015Q1

REPORT INFORMATION
  Report Type: Spontaneous
  Country: US (occurrence: None)
  Receive Date: 20150204
  Receipt Date: 20150204
  Transmission Date: 20150721
  Serious: Yes (Death)
  Sender: FDA-Public Use
  Company Number: 2724314

PATIENT
  Age: 38 Year
  Sex: Male

DRUGS (6)
  1. CODEINE [Suspect]
     Active Substance: CODEINE
     Route: 051
  2. TRAZODONE [Suspect]
     Active Substance: TRAZODONE HYDROCHLORIDE
  3. QUININE [Suspect]
     Active Substance: QUININE
  4. HEROIN [Suspect]
     Active Substance: DIACETYLMORPHINE
  5. METHADONE [Suspect]
     Active Substance: METHADONE HYDROCHLORIDE
  6. OXYCODONE [Suspect]
     Active Substance: OXYCODONE

REACTIONS (2)
  - Drug abuse [None]
  - Toxicity to various agents [None]

NARRATIVE: CASE EVENT DATE: 2013
